FAERS Safety Report 15588133 (Version 2)
Quarter: 2019Q1

REPORT INFORMATION
  Report Type: Spontaneous
  Country: US (occurrence: US)
  Receive Date: 20181105
  Receipt Date: 20190326
  Transmission Date: 20190417
  Serious: Yes (Hospitalization, Other)
  Sender: FDA-Public Use
  Company Number: US-SHIRE-US201842013

PATIENT
  Age: 72 Year
  Sex: Female

DRUGS (1)
  1. GATTEX [Suspect]
     Active Substance: TEDUGLUTIDE\WATER
     Indication: PRODUCT USED FOR UNKNOWN INDICATION
     Dosage: 0.2450, 1X/DAY:QD
     Route: 058
     Dates: start: 20161011

REACTIONS (3)
  - Urinary tract infection [Recovering/Resolving]
  - Weight increased [Unknown]
  - Sepsis [Recovering/Resolving]

NARRATIVE: CASE EVENT DATE: 20181001
